FAERS Safety Report 20820047 (Version 1)
Quarter: 2022Q2

REPORT INFORMATION
  Report Type: Report from Study
  Country: MX (occurrence: MX)
  Receive Date: 20220512
  Receipt Date: 20220512
  Transmission Date: 20220721
  Serious: Yes (Other)
  Sender: FDA-Public Use
  Company Number: MX-NOVARTISPH-NVSC2022MX108323

PATIENT
  Sex: Female
  Weight: 60 kg

DRUGS (6)
  1. ENTRESTO [Suspect]
     Active Substance: SACUBITRIL\VALSARTAN
     Indication: Tachycardia
     Dosage: 1 DOSAGE FORM, BID (START DATE MANY YEARS AGO)
     Route: 048
  2. ELIQUIS [Concomitant]
     Active Substance: APIXABAN
     Indication: Cerebral infarction
     Dosage: 1 DOSAGE FORM, BID
     Route: 048
     Dates: start: 2019
  3. LANOXIN [Concomitant]
     Active Substance: DIGOXIN
     Indication: Tachycardia
     Dosage: 0.5 DOSAGE FORM (EVERY 3RD DAY/ONE DAY YES 2 DAY NO)
     Route: 048
     Dates: start: 202202
  4. SPIRONOLACTONE [Concomitant]
     Active Substance: SPIRONOLACTONE
     Indication: Product used for unknown indication
     Dosage: 0.5 DOSAGE FORM, QD
     Route: 048
     Dates: start: 202202
  5. CARVEDILOL [Concomitant]
     Active Substance: CARVEDILOL
     Indication: Tachycardia
     Dosage: 1 DOSAGE FORM (25 MG ONE AND DIVIDED INTO 4 QUARTERS)
     Route: 048
     Dates: start: 202202
  6. BRAXAN [Concomitant]
     Indication: Tachycardia
     Dosage: 0.5 DOSAGE FORM (5 DAYS YES AND SHE REST 2 DAYS)
     Route: 048
     Dates: start: 202202

REACTIONS (6)
  - Arterial occlusive disease [Not Recovered/Not Resolved]
  - Visual impairment [Not Recovered/Not Resolved]
  - Fluid retention [Recovered/Resolved]
  - Peripheral swelling [Recovered/Resolved]
  - Weight decreased [Unknown]
  - Product use in unapproved indication [Unknown]

NARRATIVE: CASE EVENT DATE: 20210101
